FAERS Safety Report 11368070 (Version 1)
Quarter: 2015Q3

REPORT INFORMATION
  Report Type: Spontaneous
  Country: US (occurrence: None)
  Receive Date: 20150811
  Receipt Date: 20150811
  Transmission Date: 20151125
  Serious: Yes (Disabling)
  Sender: FDA-Public Use
  Company Number: None

PATIENT
  Age: 63 Year
  Sex: Female
  Weight: 90.72 kg

DRUGS (7)
  1. HYDROCHOROTHIAZIDE 20 MG [Suspect]
     Active Substance: HYDROCHLOROTHIAZIDE
     Indication: HYPERTENSION
     Dosage: TAKEN BY MOUTH
  2. ATORVASTATIN 20 MG MYLAN [Suspect]
     Active Substance: ATORVASTATIN
     Indication: BLOOD CHOLESTEROL INCREASED
     Dosage: TAKEN BY MOUTH
  3. HYDROCHOROTHIAZIDE 20 MG [Suspect]
     Active Substance: HYDROCHLOROTHIAZIDE
     Indication: ILL-DEFINED DISORDER
     Dosage: TAKEN BY MOUTH
  4. BABY ASPIRIN [Concomitant]
     Active Substance: ASPIRIN
  5. BENICAR [Concomitant]
     Active Substance: OLMESARTAN MEDOXOMIL
  6. ADVIL [Concomitant]
     Active Substance: IBUPROFEN
  7. LIPITOR [Concomitant]
     Active Substance: ATORVASTATIN CALCIUM

REACTIONS (3)
  - Feeling abnormal [None]
  - Hypoaesthesia [None]
  - Osteoarthritis [None]

NARRATIVE: CASE EVENT DATE: 20150810
